FAERS Safety Report 4449065-1 (Version None)
Quarter: 2004Q3

REPORT INFORMATION
  Report Type: 
  Country: None (occurrence: None)
  Receive Date: 20040910
  Receipt Date: 20040901
  Transmission Date: 20050211
  Serious: No
  Sender: FDA-Public Use
  Company Number: 04H-167-0272208-00

PATIENT
  Age: 41 Year
  Sex: Female

DRUGS (6)
  1. ETOMIDATE [Suspect]
     Indication: INDUCTION OF ANAESTHESIA
     Dosage: 20 MG, 1 IN 1 D, INTRAVENOUS
     Route: 042
  2. NITROUS OXIDE [Concomitant]
  3. OXYGEN [Concomitant]
  4. DIAZEPAM [Concomitant]
  5. THIOPENTAL SODIUM [Concomitant]
  6. PHENYTOIN [Concomitant]

REACTIONS (6)
  - APNOEA [None]
  - HYPERVENTILATION [None]
  - LOSS OF CONSCIOUSNESS [None]
  - POST PROCEDURAL COMPLICATION [None]
  - TACHYCARDIA [None]
  - TREMOR [None]
